FAERS Safety Report 6703014-1 (Version None)
Quarter: 2010Q2

REPORT INFORMATION
  Report Type: 
  Country: None (occurrence: None)
  Receive Date: 20100429
  Receipt Date: 20100429
  Transmission Date: 20101027
  Serious: Yes (Death)
  Sender: FDA-Public Use
  Company Number: None

PATIENT
  Sex: Male
  Weight: 93.4 kg

DRUGS (1)
  1. DROTRECOGIN ALFA [Suspect]
     Indication: SEPTIC SHOCK
     Dosage: 24 MCG/KG/HR
     Dates: start: 20100330, end: 20100403

REACTIONS (6)
  - BRAIN HERNIATION [None]
  - COAGULOPATHY [None]
  - DISSEMINATED INTRAVASCULAR COAGULATION [None]
  - HAEMORRHAGE INTRACRANIAL [None]
  - RESPIRATORY FAILURE [None]
  - SEPTIC SHOCK [None]
